FAERS Safety Report 9642814 (Version 2)
Quarter: 2013Q4

REPORT INFORMATION
  Report Type: Spontaneous
  Country: DE (occurrence: DE)
  Receive Date: 20131024
  Receipt Date: 20131024
  Transmission Date: 20140711
  Serious: Yes (Hospitalization, Other)
  Sender: FDA-Public Use
  Company Number: DE-JNJFOC-20130701157

PATIENT
  Sex: Male

DRUGS (5)
  1. TRAMAL [Suspect]
     Indication: ROAD TRAFFIC ACCIDENT
     Route: 048
     Dates: start: 2012
  2. TRAMAL [Suspect]
     Indication: ROAD TRAFFIC ACCIDENT
     Route: 048
  3. TRAMAL [Suspect]
     Indication: HEAD INJURY
     Route: 048
     Dates: start: 2012
  4. TRAMAL [Suspect]
     Indication: HEAD INJURY
     Route: 048
  5. TRAMAL TROPFEN [Suspect]
     Indication: PAIN
     Route: 048
     Dates: start: 2012

REACTIONS (7)
  - Intentional drug misuse [Unknown]
  - Syncope [Recovered/Resolved]
  - Femoral neck fracture [Unknown]
  - Dizziness [Recovered/Resolved]
  - Circulatory collapse [Recovered/Resolved]
  - Nausea [Recovered/Resolved]
  - Muscle spasms [Recovered/Resolved]
